FAERS Safety Report 7177270-2 (Version None)
Quarter: 2010Q4

REPORT INFORMATION
  Report Type: 
  Country: None (occurrence: None)
  Receive Date: 20101220
  Receipt Date: 20101214
  Transmission Date: 20110411
  Serious: Yes (Other)
  Sender: FDA-Public Use
  Company Number: BR-ROCHE-748358

PATIENT
  Sex: Female
  Weight: 76 kg

DRUGS (3)
  1. TOCILIZUMAB [Suspect]
     Indication: RHEUMATOID ARTHRITIS
     Dosage: FORM: INFUSION, ROUTE: ENDOVENOUS
     Route: 050
     Dates: start: 20091127, end: 20100824
  2. ARAVA [Concomitant]
     Dosage: DOSE: 20 MG
  3. PREDSIM [Concomitant]
     Dosage: DOSE: 10 MG

REACTIONS (3)
  - C-REACTIVE PROTEIN INCREASED [None]
  - LABORATORY TEST ABNORMAL [None]
  - NODULE [None]
